FAERS Safety Report 10408078 (Version 1)
Quarter: 2014Q3

REPORT INFORMATION
  Report Type: Spontaneous
  Country: IN (occurrence: IN)
  Receive Date: 20140825
  Receipt Date: 20140825
  Transmission Date: 20150326
  Serious: Yes (Congenital Anomaly, Other)
  Sender: FDA-Public Use
  Company Number: IN-B.I. PHARMACEUTICALS,INC./RIDGEFIELD-2014-BI-39280GD

PATIENT
  Sex: Male

DRUGS (1)
  1. TELMISARTAN. [Suspect]
     Active Substance: TELMISARTAN
     Indication: EXPOSURE DURING PREGNANCY
     Route: 064

REACTIONS (5)
  - Anuria [Not Recovered/Not Resolved]
  - Congenital renal disorder [Not Recovered/Not Resolved]
  - Neonatal respiratory distress syndrome [Unknown]
  - Premature baby [Unknown]
  - Renal failure neonatal [Not Recovered/Not Resolved]
